FAERS Safety Report 10071096 (Version 2)
Quarter: 2014Q2

REPORT INFORMATION
  Report Type: Spontaneous
  Country: AR (occurrence: AR)
  Receive Date: 20140410
  Receipt Date: 20140429
  Transmission Date: 20141212
  Serious: Yes (Other)
  Sender: FDA-Public Use
  Company Number: PHHY2014AR043832

PATIENT
  Sex: Female

DRUGS (1)
  1. VOLTAREN COLIRIO [Suspect]
     Dosage: UNK UKN, PRN
     Route: 065
     Dates: start: 1963

REACTIONS (6)
  - Fall [Unknown]
  - Glaucoma [Unknown]
  - Respiratory tract congestion [Unknown]
  - Eye irritation [Unknown]
  - Influenza [Unknown]
  - Malaise [Unknown]
